FAERS Safety Report 24759718 (Version 1)
Quarter: 2024Q4

REPORT INFORMATION
  Report Type: Spontaneous
  Country: US (occurrence: None)
  Receive Date: 20241220
  Receipt Date: 20241220
  Transmission Date: 20250115
  Serious: Yes (Hospitalization)
  Sender: Public
  Company Number: None

PATIENT
  Sex: Male

DRUGS (3)
  1. BOSENTAN [Suspect]
     Active Substance: BOSENTAN
     Indication: Pulmonary arterial hypertension
     Dosage: 125MG BID PO
     Route: 048
     Dates: start: 201907
  2. TADALAFIL [Suspect]
     Active Substance: TADALAFIL
     Dosage: 40MG  ONCE DAILY BY MOUTH
     Route: 048
  3. TREPROSTINIL [Concomitant]
     Active Substance: TREPROSTINIL

REACTIONS (2)
  - Vascular device infection [None]
  - Thrombosis in device [None]
